FAERS Safety Report 21506504 (Version 1)
Quarter: 2022Q4

REPORT INFORMATION
  Report Type: Spontaneous
  Country: TR (occurrence: TR)
  Receive Date: 20221026
  Receipt Date: 20221026
  Transmission Date: 20230112
  Serious: Yes (Hospitalization, Other)
  Sender: FDA-Public Use
  Company Number: TR-ALKEM LABORATORIES LIMITED-TR-ALKEM-2022-11164

PATIENT
  Age: 60 Year

DRUGS (1)
  1. CEFUROXIME AXETIL [Suspect]
     Active Substance: CEFUROXIME AXETIL
     Indication: Cataract operation
     Dosage: 1 MILLIGRAM PER MILLILITRE (0.1 ML), UNK
     Route: 065

REACTIONS (5)
  - Retinal infarction [Unknown]
  - Retinal haemorrhage [Recovered/Resolved]
  - Corneal oedema [Recovered/Resolved]
  - Retinal oedema [Unknown]
  - Retinal neovascularisation [Unknown]
